FAERS Safety Report 16658925 (Version 1)
Quarter: 2019Q3

REPORT INFORMATION
  Report Type: Spontaneous
  Country: US (occurrence: US)
  Receive Date: 20190801
  Receipt Date: 20190801
  Transmission Date: 20191004
  Serious: Yes (Other)
  Sender: FDA-Public Use
  Company Number: US-ASTRAZENECA-2019SF07581

PATIENT
  Age: 72 Year
  Sex: Male
  Weight: 89.2 kg

DRUGS (2)
  1. IMFINZI [Suspect]
     Active Substance: DURVALUMAB
     Indication: LUNG NEOPLASM MALIGNANT
     Route: 041
     Dates: end: 20190724
  2. MAGNESIUM [Concomitant]
     Active Substance: MAGNESIUM
     Dosage: 2 GM
     Route: 042
     Dates: start: 20190724

REACTIONS (2)
  - Blood magnesium decreased [Unknown]
  - Chest X-ray abnormal [Unknown]

NARRATIVE: CASE EVENT DATE: 20190724
